FAERS Safety Report 14972663 (Version 4)
Quarter: 2018Q3

REPORT INFORMATION
  Report Type: Spontaneous
  Country: US (occurrence: US)
  Receive Date: 20180605
  Receipt Date: 20180921
  Transmission Date: 20181010
  Serious: No
  Sender: FDA-Public Use
  Company Number: US-PFIZER INC-2018227021

PATIENT
  Age: 73 Year
  Sex: Male
  Weight: 113 kg

DRUGS (3)
  1. LYRICA [Suspect]
     Active Substance: PREGABALIN
     Indication: NEUROPATHY PERIPHERAL
     Dosage: 75 MG, 3X/DAY
     Route: 048
     Dates: start: 20180303
  2. LYRICA [Suspect]
     Active Substance: PREGABALIN
     Indication: POLYNEUROPATHY
     Dosage: 75 MG, 2X/DAY
     Route: 048
     Dates: start: 20180526
  3. LYRICA [Suspect]
     Active Substance: PREGABALIN
     Indication: DIABETIC NEUROPATHY
     Dosage: 75 MG, 4X/DAY
     Route: 048
     Dates: start: 201804

REACTIONS (3)
  - Intentional product misuse [Not Recovered/Not Resolved]
  - Pain in extremity [Unknown]
  - Back disorder [Unknown]

NARRATIVE: CASE EVENT DATE: 20180526
